FAERS Safety Report 13882654 (Version 1)
Quarter: 2017Q3

REPORT INFORMATION
  Report Type: Spontaneous
  Country: CO (occurrence: CO)
  Receive Date: 20170818
  Receipt Date: 20170818
  Transmission Date: 20171127
  Serious: Yes (Hospitalization)
  Sender: FDA-Public Use
  Company Number: CO-SA-2017SA147443

PATIENT
  Age: 10 Month
  Sex: Female

DRUGS (3)
  1. ZINC SULFATE [Concomitant]
     Active Substance: ZINC SULFATE\ZINC SULFATE ANHYDROUS
     Indication: DYSENTERY
     Route: 048
     Dates: start: 20170730
  2. ENTEROGERMINA [Concomitant]
     Active Substance: BACILLUS SUBTILIS
     Indication: DYSENTERY
     Dosage: DOSE:1 VIAL
     Route: 048
     Dates: start: 20170730
  3. WINTOMYLON [Suspect]
     Active Substance: NALIDIXIC ACID
     Indication: DYSENTERY
     Dosage: DOSE , DAILY DOSE AND FREQUENCY: 55 MG/DAY/EVERY 8 HOUR
     Route: 048
     Dates: start: 20170730, end: 20170807

REACTIONS (3)
  - Diarrhoea haemorrhagic [Unknown]
  - Condition aggravated [Unknown]
  - Treatment failure [Unknown]

NARRATIVE: CASE EVENT DATE: 20170807
